FAERS Safety Report 5404717-1 (Version None)
Quarter: 2007Q3

REPORT INFORMATION
  Report Type: 
  Country: None (occurrence: None)
  Receive Date: 20070801
  Receipt Date: 20070720
  Transmission Date: 20080115
  Serious: Yes (Hospitalization)
  Sender: FDA-Public Use
  Company Number: 2007-02580

PATIENT
  Age: 49 Year

DRUGS (5)
  1. VELCADE [Suspect]
     Indication: MULTIPLE MYELOMA
  2. CYCLOPHOSPHAMIDE [Suspect]
     Indication: MULTIPLE MYELOMA
  3. DOXORUBICIN HCL [Suspect]
     Indication: MULTIPLE MYELOMA
  4. DEXAMETHASONE [Suspect]
     Indication: MULTIPLE MYELOMA
  5. ACETAMINOPHEN [Concomitant]

REACTIONS (2)
  - CACHEXIA [None]
  - MALAISE [None]
